FAERS Safety Report 7420917-3 (Version None)
Quarter: 2011Q2

REPORT INFORMATION
  Report Type: 
  Country: None (occurrence: None)
  Receive Date: 20110418
  Receipt Date: 20110411
  Transmission Date: 20111010
  Serious: Yes (Hospitalization)
  Sender: FDA-Public Use
  Company Number: B0711486A

PATIENT
  Sex: Female
  Weight: 75 kg

DRUGS (4)
  1. REVOLADE [Suspect]
     Indication: IDIOPATHIC THROMBOCYTOPENIC PURPURA
     Route: 048
     Dates: start: 20101021, end: 20110225
  2. THYRAX [Concomitant]
  3. SOTALOL [Concomitant]
  4. CALCI CHEW [Concomitant]

REACTIONS (2)
  - PLEURAL EFFUSION [None]
  - DYSPNOEA [None]
